FAERS Safety Report 11417024 (Version 3)
Quarter: 2015Q3

REPORT INFORMATION
  Report Type: Spontaneous
  Country: JP (occurrence: JP)
  Receive Date: 20150825
  Receipt Date: 20150909
  Transmission Date: 20151125
  Serious: Yes (Hospitalization)
  Sender: FDA-Public Use
  Company Number: JP-PFIZER INC-2015279434

PATIENT
  Age: 50 Year
  Sex: Female

DRUGS (3)
  1. LYRICA [Suspect]
     Active Substance: PREGABALIN
     Indication: SCIATICA
     Dosage: 25 MG, 1X/DAY
     Route: 048
     Dates: start: 20150805, end: 20150807
  2. MUCOSTA [Concomitant]
     Active Substance: REBAMIPIDE
     Route: 048
  3. CELECOX [Concomitant]
     Active Substance: CELECOXIB
     Dosage: UNK
     Route: 048

REACTIONS (6)
  - Vomiting [Unknown]
  - Dehydration [Unknown]
  - Hypoproteinaemia [Unknown]
  - Malaise [Unknown]
  - Blood alkaline phosphatase increased [Unknown]
  - Malnutrition [Unknown]

NARRATIVE: CASE EVENT DATE: 201508
